FAERS Safety Report 18436033 (Version 1)
Quarter: 2020Q4

REPORT INFORMATION
  Report Type: Spontaneous
  Country: US (occurrence: US)
  Receive Date: 20201028
  Receipt Date: 20201028
  Transmission Date: 20210114
  Serious: Yes (Death)
  Sender: FDA-Public Use
  Company Number: None

PATIENT
  Age: 69 Year
  Sex: Male

DRUGS (1)
  1. FORTEO [Suspect]
     Active Substance: TERIPARATIDE
     Dosage: ?          OTHER STRENGTH:600MCG/2.4ML;?
     Route: 058
     Dates: start: 202005

REACTIONS (1)
  - Death [None]

NARRATIVE: CASE EVENT DATE: 20201021
